FAERS Safety Report 7478586-2 (Version None)
Quarter: 2011Q2

REPORT INFORMATION
  Report Type: 
  Country: None (occurrence: None)
  Receive Date: 20110513
  Receipt Date: 20101130
  Transmission Date: 20111010
  Serious: Yes (Hospitalization)
  Sender: FDA-Public Use
  Company Number: US-BIOGENIDEC-2011BI017607

PATIENT
  Sex: Female

DRUGS (2)
  1. AVONEX [Suspect]
     Route: 064
     Dates: start: 20030101, end: 20040101
  2. AVONEX [Suspect]
     Indication: DRUG EXPOSURE DURING PREGNANCY
     Route: 064
     Dates: start: 20011031, end: 20030101

REACTIONS (1)
  - DYSPHAGIA [None]
